FAERS Safety Report 25858744 (Version 1)
Quarter: 2025Q3

REPORT INFORMATION
  Report Type: Spontaneous
  Country: CH (occurrence: CH)
  Receive Date: 20250929
  Receipt Date: 20250929
  Transmission Date: 20251020
  Serious: Yes (Other)
  Sender: AMGEN
  Company Number: CH-AMGEN-CHESP2025177786

PATIENT
  Age: 68 Year
  Sex: Female
  Weight: 43 kg

DRUGS (5)
  1. XGEVA [Suspect]
     Active Substance: DENOSUMAB
     Indication: Prophylaxis
     Dosage: 120 MILLIGRAM, Q4WK
     Route: 058
     Dates: start: 20240502
  2. TRAMADOL [Concomitant]
     Active Substance: TRAMADOL
     Dosage: 50 MILLIGRAM, BID AS NEEDED
  3. TRAMADOL [Concomitant]
     Active Substance: TRAMADOL
  4. PEMBROLIZUMAB [Concomitant]
     Active Substance: PEMBROLIZUMAB
  5. PACLITAXEL [Concomitant]
     Active Substance: PACLITAXEL

REACTIONS (12)
  - Osteoporotic fracture [Unknown]
  - Osteonecrosis of jaw [Unknown]
  - Metastases to spine [Unknown]
  - Metastatic neoplasm [Unknown]
  - Squamous cell carcinoma of lung [Unknown]
  - Ureteric stenosis [Unknown]
  - Haemangioma of skin [Unknown]
  - Depression [Unknown]
  - Malnutrition [Unknown]
  - Gait disturbance [Unknown]
  - Balance disorder [Unknown]
  - Fall [Unknown]

NARRATIVE: CASE EVENT DATE: 20240613
